FAERS Safety Report 17228816 (Version 1)
Quarter: 2020Q1

REPORT INFORMATION
  Report Type: Spontaneous
  Country: AU (occurrence: AU)
  Receive Date: 20200103
  Receipt Date: 20200103
  Transmission Date: 20200409
  Serious: Yes (Hospitalization, Other)
  Sender: FDA-Public Use
  Company Number: AU-PFIZER INC-2019560299

PATIENT
  Age: 39 Year
  Sex: Male

DRUGS (1)
  1. TOFACITINIB CITRATE [Suspect]
     Active Substance: TOFACITINIB CITRATE
     Dosage: UNK

REACTIONS (6)
  - Malaise [Unknown]
  - Disease progression [Unknown]
  - Depression [Unknown]
  - Contraindicated product administered [Unknown]
  - Inflammatory bowel disease [Unknown]
  - Haematochezia [Unknown]

NARRATIVE: CASE EVENT DATE: 201910
